FAERS Safety Report 5223769-5 (Version None)
Quarter: 2007Q1

REPORT INFORMATION
  Report Type: 
  Country: None (occurrence: None)
  Receive Date: 20070125
  Receipt Date: 20070112
  Transmission Date: 20070707
  Serious: Yes (Hospitalization, Other)
  Sender: FDA-Public Use
  Company Number: HQWYE284112JAN07

PATIENT
  Age: 50 Year
  Sex: Male

DRUGS (1)
  1. PANTOPRAZOLE (PANTOPRAZOLE, UNSPEC) [Suspect]
     Indication: GASTROOESOPHAGEAL REFLUX DISEASE
     Dosage: 1 DAY MG ORAL
     Route: 048
     Dates: start: 20061221

REACTIONS (2)
  - CHEST PAIN [None]
  - NAUSEA [None]
